FAERS Safety Report 10360874 (Version 1)
Quarter: 2014Q3

REPORT INFORMATION
  Report Type: Spontaneous
  Country: IT (occurrence: None)
  Receive Date: 20140731
  Receipt Date: 20140731
  Transmission Date: 20150326
  Serious: Yes (Hospitalization)
  Sender: FDA-Public Use
  Company Number: AUR-APL-2014-07962

PATIENT
  Sex: Female

DRUGS (2)
  1. CLOPIDOGREL (CLOPIDOGREL) UNKNOWN [Suspect]
     Active Substance: CLOPIDOGREL BISULFATE
     Indication: PRODUCT USED FOR UNKNOWN INDICATION
  2. RAMIPRIL (RAMIPRIL) UNKNOWN, UNKNOWN [Suspect]
     Active Substance: RAMIPRIL
     Indication: PRODUCT USED FOR UNKNOWN INDICATION

REACTIONS (2)
  - Melaena [None]
  - Haematemesis [None]

NARRATIVE: CASE EVENT DATE: 20140702
